FAERS Safety Report 4286266-X (Version None)
Quarter: 2004Q1

REPORT INFORMATION
  Report Type: 
  Country: None (occurrence: None)
  Receive Date: 20040205
  Receipt Date: 20040205
  Transmission Date: 20041129
  Serious: Yes (Hospitalization)
  Sender: FDA-Public Use
  Company Number: None

PATIENT
  Age: 78 Year
  Sex: Male
  Weight: 62.2 kg

DRUGS (5)
  1. HYDROCHLOROTHIAZIDE [Suspect]
     Indication: HYPERTENSION
     Dosage: 25 MG Q AM
  2. PROPRANOLOL [Suspect]
     Dosage: 20 MG BID
  3. NIFEDIPINE [Suspect]
     Dosage: 30 MG QD
  4. GEMFIBROZIL [Concomitant]
  5. RANITIDINE [Concomitant]

REACTIONS (4)
  - CONTUSION [None]
  - FALL [None]
  - HEAD INJURY [None]
  - SYNCOPE [None]
